FAERS Safety Report 6604479-6 (Version None)
Quarter: 2010Q1

REPORT INFORMATION
  Report Type: 
  Country: None (occurrence: None)
  Receive Date: 20100226
  Receipt Date: 20091027
  Transmission Date: 20100710
  Serious: No
  Sender: FDA-Public Use
  Company Number: A0813607A

PATIENT
  Age: 49 Year
  Sex: Female

DRUGS (9)
  1. LAMICTAL CD [Suspect]
     Indication: BIPOLAR DISORDER
     Route: 048
     Dates: start: 20090501, end: 20090501
  2. SEROQUEL [Concomitant]
  3. XANAX [Concomitant]
  4. FLEXERIL [Concomitant]
  5. PERCOCET [Concomitant]
  6. LEVOTHYROXINE [Concomitant]
  7. LITHIUM CARBONATE [Concomitant]
  8. ALLEGRA [Concomitant]
  9. PRILOSEC [Concomitant]

REACTIONS (5)
  - DYSPHAGIA [None]
  - DYSPNOEA [None]
  - PRURITUS [None]
  - RASH GENERALISED [None]
  - SWELLING FACE [None]
